FAERS Safety Report 4339586-4 (Version None)
Quarter: 2004Q1

REPORT INFORMATION
  Report Type: 
  Country: None (occurrence: None)
  Receive Date: 20040329
  Receipt Date: 20040116
  Transmission Date: 20041129
  Serious: No
  Sender: FDA-Public Use
  Company Number: 04P-163-0246652-00

PATIENT
  Age: 56 Year
  Sex: Female
  Weight: 90.7194 kg

DRUGS (14)
  1. HUMIRA [Suspect]
     Indication: RHEUMATOID ARTHRITIS
     Dosage: 40 MG, 1 IN 2 WK, SUBCUTANEOUS; 20 MG, 1 IN 2 WK, SUBCUTANEOUS
     Route: 058
     Dates: start: 20031231, end: 20040101
  2. HUMIRA [Suspect]
     Indication: RHEUMATOID ARTHRITIS
     Dosage: 40 MG, 1 IN 2 WK, SUBCUTANEOUS; 20 MG, 1 IN 2 WK, SUBCUTANEOUS
     Route: 058
     Dates: start: 20040114
  3. SIMVASTATIN [Concomitant]
  4. MULTI-VITAMINS [Concomitant]
  5. ZOLPIDEM TARTRATE [Concomitant]
  6. AMLODIPINE BESYLATE [Concomitant]
  7. INSULIN NORDISK MIXTARD (PORK) [Concomitant]
  8. ULTRACET [Concomitant]
  9. HYZAAR [Concomitant]
  10. PIOGLITAZONE HCL [Concomitant]
  11. NABUMETONE [Concomitant]
  12. FOLIC ACID [Concomitant]
  13. ALENDRONATE SODIUM [Concomitant]
  14. SULFASALAZINE [Concomitant]

REACTIONS (6)
  - DYSPEPSIA [None]
  - HEADACHE [None]
  - HYPOAESTHESIA [None]
  - ORAL PRURITUS [None]
  - PARAESTHESIA [None]
  - STOMACH DISCOMFORT [None]
